FAERS Safety Report 15353612 (Version 4)
Quarter: 2018Q4

REPORT INFORMATION
  Report Type: Report from Study
  Country: DE (occurrence: DE)
  Receive Date: 20180905
  Receipt Date: 20181009
  Transmission Date: 20190204
  Serious: Yes (Disabling)
  Sender: FDA-Public Use
  Company Number: DE-BAUSCH-BL-2018-020420

PATIENT
  Sex: Male

DRUGS (4)
  1. KYNTHEUM [Suspect]
     Active Substance: BRODALUMAB
     Indication: OFF LABEL USE
  2. LANTAREL [Concomitant]
     Active Substance: METHOTREXATE SODIUM
     Indication: PSORIASIS
     Route: 048
  3. KYNTHEUM [Suspect]
     Active Substance: BRODALUMAB
     Indication: PSORIASIS
     Route: 058
     Dates: start: 20180115, end: 20180816
  4. KYNTHEUM [Suspect]
     Active Substance: BRODALUMAB
     Indication: NAIL PSORIASIS

REACTIONS (7)
  - Back pain [Recovered/Resolved]
  - Off label use [Recovered/Resolved]
  - Psoriasis [Recovered/Resolved]
  - Disturbance in attention [Recovered/Resolved]
  - Microsleep [Recovered/Resolved]
  - Arthralgia [Recovered/Resolved]
  - Erythema [Recovered/Resolved]

NARRATIVE: CASE EVENT DATE: 20180115
